FAERS Safety Report 15952282 (Version 1)
Quarter: 2019Q1

REPORT INFORMATION
  Report Type: Spontaneous
  Country: US (occurrence: US)
  Receive Date: 20190212
  Receipt Date: 20190212
  Transmission Date: 20190417
  Serious: No
  Sender: FDA-Public Use
  Company Number: US-PFIZER INC-2014229746

PATIENT
  Age: 85 Year
  Sex: Female
  Weight: 61.22 kg

DRUGS (7)
  1. AMITRIPTYLINE [Concomitant]
     Active Substance: AMITRIPTYLINE
     Dosage: 50 MG, DAILY (50MG QHS)
  2. ATENOLOL. [Concomitant]
     Active Substance: ATENOLOL
     Dosage: 25 MG, 2X/DAY
  3. DILTIAZEM. [Concomitant]
     Active Substance: DILTIAZEM
     Dosage: 120 MG, DAILY (120MG/DAY)
  4. SIMVASTATIN. [Concomitant]
     Active Substance: SIMVASTATIN
     Dosage: UNK
  5. PRISTIQ EXTENDED-RELEASE [Suspect]
     Active Substance: DESVENLAFAXINE SUCCINATE
     Indication: ANXIETY
     Dosage: 100 MG, 1X/DAY
     Route: 048
  6. SEROQUEL [Concomitant]
     Active Substance: QUETIAPINE FUMARATE
     Dosage: 50 MG, DAILY (SEROQUEL 50MG QHS)
  7. PRISTIQ EXTENDED-RELEASE [Suspect]
     Active Substance: DESVENLAFAXINE SUCCINATE
     Indication: DEPRESSION
     Dosage: 100 MG, 2X/DAY

REACTIONS (2)
  - Disorientation [Unknown]
  - Fatigue [Not Recovered/Not Resolved]

NARRATIVE: CASE EVENT DATE: 201901
